FAERS Safety Report 4443596-6 (Version None)
Quarter: 2004Q3

REPORT INFORMATION
  Report Type: 
  Country: None (occurrence: None)
  Receive Date: 20040908
  Receipt Date: 20040824
  Transmission Date: 20050211
  Serious: Yes (Hospitalization)
  Sender: FDA-Public Use
  Company Number: PHEH2004US09179

PATIENT
  Sex: Male

DRUGS (4)
  1. ZOLEDRONATE [Suspect]
     Indication: PROSTATE CANCER METASTATIC
     Dosage: UNK/UNK
  2. DURAGESIC [Suspect]
  3. LUPRON [Concomitant]
  4. OXYCONTIN [Concomitant]

REACTIONS (8)
  - BLOOD ALBUMIN DECREASED [None]
  - BLOOD CALCIUM DECREASED [None]
  - BLOOD POTASSIUM DECREASED [None]
  - BONE PAIN [None]
  - CONFUSIONAL STATE [None]
  - DELUSION [None]
  - GASTROINTESTINAL HAEMORRHAGE [None]
  - LABORATORY TEST ABNORMAL [None]
